FAERS Safety Report 24027871 (Version 1)
Quarter: 2024Q2

REPORT INFORMATION
  Report Type: Spontaneous
  Country: US (occurrence: US)
  Receive Date: 20240628
  Receipt Date: 20240628
  Transmission Date: 20240716
  Serious: No
  Sender: FDA-Public Use
  Company Number: US-BRISTOL-MYERS SQUIBB COMPANY-2024-103590

PATIENT
  Age: 75 Year
  Sex: Male

DRUGS (1)
  1. REVLIMID [Suspect]
     Active Substance: LENALIDOMIDE
     Indication: Plasma cell myeloma
     Dosage: DOSE : 25 MG; FREQUENCY: 25 MG DAILY FOR 21 DAYS AND OFF FOR 7 DAYS 28 DAILY
     Route: 048
     Dates: start: 20240604

REACTIONS (2)
  - Pruritus [Unknown]
  - Drug hypersensitivity [Unknown]
